FAERS Safety Report 14730206 (Version 2)
Quarter: 2018Q2

REPORT INFORMATION
  Report Type: Spontaneous
  Country: US (occurrence: US)
  Receive Date: 20180406
  Receipt Date: 20180525
  Transmission Date: 20180711
  Serious: No
  Sender: FDA-Public Use
  Company Number: US-PFIZER INC-2018141652

PATIENT
  Age: 49 Year
  Sex: Female

DRUGS (2)
  1. SUTENT [Suspect]
     Active Substance: SUNITINIB MALATE
     Dosage: 37.5 MG, 1X/DAY
     Dates: start: 20180402, end: 20180522
  2. SUTENT [Suspect]
     Active Substance: SUNITINIB MALATE
     Indication: RENAL CANCER
     Dosage: 50 MG, CYCLIC (FOR 28 DAYS, THEN 14 DAYS OFF)
     Dates: start: 20171023, end: 20180403

REACTIONS (2)
  - Neoplasm progression [Unknown]
  - Blood pressure increased [Unknown]
